FAERS Safety Report 22369930 (Version 5)
Quarter: 2023Q2

REPORT INFORMATION
  Report Type: Report from Study
  Country: US (occurrence: None)
  Receive Date: 20230526
  Receipt Date: 20230616
  Transmission Date: 20230721
  Serious: Yes (Hospitalization, Other)
  Sender: FDA-Public Use
  Company Number: US-ROCHE-2932113

PATIENT
  Age: 73 Year
  Sex: Female
  Weight: 44.3 kg

DRUGS (16)
  1. ATEZOLIZUMAB [Suspect]
     Active Substance: ATEZOLIZUMAB
     Indication: Small cell lung cancer
     Dosage: ON 16/MAR/2021 AND 13/APR/2021, 20/JUL/2021, RECEIVED MOST RECENT DOSE OF ATEZOLIZUMAB BEFORE EVENT.
     Route: 041
     Dates: start: 20210223
  2. CISPLATIN [Suspect]
     Active Substance: CISPLATIN
     Indication: Small cell lung cancer
     Dosage: ON 16/MAR/2021, 13/APR/2021, RECEIVED MOST RECENT DOSE OF CISPLATIN BEFORE EVENT.?ON DAY 1. CYCLES R
     Route: 042
     Dates: start: 20210202
  3. CISPLATIN [Suspect]
     Active Substance: CISPLATIN
     Route: 042
     Dates: start: 20210223
  4. ETOPOSIDE [Suspect]
     Active Substance: ETOPOSIDE
     Indication: Small cell lung cancer
     Dosage: ON 16/MAR/2021, 15/APR/2021, 27/FEB/2021, RECEIVED MOST RECENT DOSE OF ETOPOSIDE BEFORE EVENT.?ON DA
     Route: 042
     Dates: start: 20210223
  5. ETOPOSIDE [Suspect]
     Active Substance: ETOPOSIDE
     Route: 042
     Dates: start: 20210202
  6. ETOPOSIDE [Suspect]
     Active Substance: ETOPOSIDE
     Dosage: ON 18/MAR/2021, RECEIVED MOST RECENT DOSE OF ETOPOSIDE BEFORE EVENT.
     Route: 042
     Dates: start: 20210202
  7. ETOPOSIDE [Suspect]
     Active Substance: ETOPOSIDE
     Dosage: LAST ADMINISTRATION ON  27/APR/2021
     Route: 042
     Dates: start: 20210202, end: 20210427
  8. CARBOPLATIN [Suspect]
     Active Substance: CARBOPLATIN
     Indication: Small cell lung cancer
     Dosage: LAST ADMINISTRATION ON 27/APR/2021
     Route: 065
     Dates: start: 20210202, end: 20210427
  9. OMEPRAZOLE [Concomitant]
     Active Substance: OMEPRAZOLE
  10. SUCRALFATE [Concomitant]
     Active Substance: SUCRALFATE
  11. POTASSIUM [Concomitant]
     Active Substance: POTASSIUM
     Route: 048
  12. MAGNESIUM [Concomitant]
     Active Substance: MAGNESIUM
  13. ASPIRIN [Concomitant]
     Active Substance: ASPIRIN
  14. OXYCODONE [Concomitant]
     Active Substance: OXYCODONE
     Indication: Pain
  15. OXYCODONE [Concomitant]
     Active Substance: OXYCODONE
     Indication: Pain
  16. DILAUDID [Concomitant]
     Active Substance: HYDROMORPHONE HYDROCHLORIDE
     Indication: Pain

REACTIONS (11)
  - Diarrhoea [Recovered/Resolved]
  - Fatigue [Recovered/Resolved]
  - Oesophagitis [Recovered/Resolved]
  - Influenza like illness [Recovered/Resolved]
  - Neutrophil count decreased [Recovered/Resolved]
  - Pneumonitis [Not Recovered/Not Resolved]
  - Muscular weakness [Recovered/Resolved]
  - White blood cell count decreased [Recovered/Resolved]
  - Neutrophil count decreased [Recovered/Resolved]
  - Platelet count decreased [Recovered/Resolved]
  - Lymphocyte count decreased [Recovered/Resolved]

NARRATIVE: CASE EVENT DATE: 20210310
